FAERS Safety Report 13899109 (Version 1)
Quarter: 2017Q3

REPORT INFORMATION
  Report Type: Spontaneous
  Country: US (occurrence: US)
  Receive Date: 20170823
  Receipt Date: 20170823
  Transmission Date: 20171127
  Serious: No
  Sender: FDA-Public Use
  Company Number: None

PATIENT
  Age: 30 Year
  Sex: Female
  Weight: 69.75 kg

DRUGS (1)
  1. ESTRADIOL TRANSDERMAL SYSTEM [Suspect]
     Active Substance: ESTRADIOL
     Indication: HORMONE REPLACEMENT THERAPY
     Dosage: ?          QUANTITY:1 PATCH(ES);OTHER FREQUENCY:CHANGE WEEKLY;?
     Route: 062
     Dates: start: 20170816

REACTIONS (6)
  - Application site pruritus [None]
  - Application site pain [None]
  - Application site exfoliation [None]
  - Application site irritation [None]
  - Dermal absorption impaired [None]
  - Application site rash [None]
